FAERS Safety Report 6940654-9 (Version None)
Quarter: 2010Q3

REPORT INFORMATION
  Report Type: 
  Country: None (occurrence: None)
  Receive Date: 20100825
  Receipt Date: 20100816
  Transmission Date: 20110219
  Serious: Yes (Hospitalization)
  Sender: FDA-Public Use
  Company Number: US-ASTRAZENECA-2010SE38318

PATIENT
  Age: 10893 Day
  Sex: Male
  Weight: 88.9 kg

DRUGS (4)
  1. BUDESONIDE [Suspect]
     Indication: CROHN'S DISEASE
     Route: 048
  2. REMICADE [Suspect]
     Indication: CROHN'S DISEASE
     Dosage: 11 INFUSIONS
     Route: 042
     Dates: start: 20030828, end: 20050210
  3. REMICADE [Suspect]
     Dosage: 17 INFUSIONS
     Route: 042
     Dates: start: 20050331, end: 20071217
  4. CERTOLIZUMAB PEGOL [Suspect]

REACTIONS (3)
  - CROHN'S DISEASE [None]
  - DRUG INEFFECTIVE [None]
  - ILEAL FISTULA [None]
